FAERS Safety Report 7283995-0 (Version None)
Quarter: 2011Q1

REPORT INFORMATION
  Report Type: 
  Country: None (occurrence: None)
  Receive Date: 20110131
  Receipt Date: 20110118
  Transmission Date: 20110831
  Serious: Yes (Hospitalization)
  Sender: FDA-Public Use
  Company Number: 8040938

PATIENT
  Sex: Male
  Weight: 2.7 kg

DRUGS (3)
  1. LEXAPRO [Concomitant]
  2. KEPPRA [Suspect]
     Dosage: (1125 MG BID, DAILY, TRANSPLACENTAL)
     Route: 064
     Dates: start: 20080307, end: 20081125
  3. PRENATAL VITAMINS /01549301/ [Concomitant]

REACTIONS (6)
  - MATERNAL DRUGS AFFECTING FOETUS [None]
  - DEHYDRATION [None]
  - CONSTIPATION [None]
  - JAUNDICE NEONATAL [None]
  - PREMATURE BABY [None]
  - DRUG EXPOSURE VIA BREAST MILK [None]
